FAERS Safety Report 15147863 (Version 3)
Quarter: 2018Q3

REPORT INFORMATION
  Report Type: Spontaneous
  Country: US (occurrence: RU)
  Receive Date: 20180716
  Receipt Date: 20180806
  Transmission Date: 20181010
  Serious: Yes (Hospitalization, Other)
  Sender: FDA-Public Use
  Company Number: US-BAUSCH-BL-2018-019213

PATIENT
  Age: 52 Year
  Sex: Female

DRUGS (3)
  1. FLUOROURACIL. [Suspect]
     Active Substance: FLUOROURACIL
     Indication: BREAST CANCER
     Dosage: 6 CYCLICAL
     Route: 065
     Dates: start: 2013
  2. CYCLOPHOSPHAMIDE. [Suspect]
     Active Substance: CYCLOPHOSPHAMIDE
     Indication: BREAST CANCER
     Dosage: 6 CYCLICAL
     Route: 065
     Dates: start: 2013
  3. DOXORUBICIN [Suspect]
     Active Substance: DOXORUBICIN
     Indication: BREAST CANCER
     Dosage: 6 CYCLICAL (APPROXIMATELY 0.05 G/M2 PER CYCLE)CYCLICAL
     Route: 065
     Dates: start: 2013

REACTIONS (12)
  - Ventricular tachycardia [Unknown]
  - Pleural effusion [Recovered/Resolved]
  - Deep vein thrombosis [Unknown]
  - Pulmonary hypertension [Unknown]
  - Cardiac ventricular thrombosis [Recovered/Resolved]
  - Tricuspid valve incompetence [Unknown]
  - Cardiotoxicity [Recovering/Resolving]
  - Left ventricular dysfunction [Recovering/Resolving]
  - Cardiomyopathy [Recovering/Resolving]
  - Pulmonary infarction [Unknown]
  - Pulmonary embolism [Unknown]
  - Mitral valve incompetence [Unknown]
